FAERS Safety Report 20658582 (Version 2)
Quarter: 2022Q2

REPORT INFORMATION
  Report Type: Report from Study
  Country: CA (occurrence: CA)
  Receive Date: 20220331
  Receipt Date: 20220405
  Transmission Date: 20220721
  Serious: Yes (Other)
  Sender: FDA-Public Use
  Company Number: CA-002147023-NVSC2022CA068193

PATIENT
  Age: 25 Year
  Sex: Female

DRUGS (11)
  1. DICLOFENAC [Suspect]
     Active Substance: DICLOFENAC
     Indication: Arthritis
     Dosage: UNK
     Route: 065
     Dates: start: 2006
  2. IBUPROFEN [Suspect]
     Active Substance: IBUPROFEN
     Indication: Arthritis
     Dosage: UNK
     Route: 065
     Dates: start: 2006, end: 2009
  3. INDOMETHACIN [Suspect]
     Active Substance: INDOMETHACIN
     Indication: Arthritis
     Dosage: UNK
     Route: 065
     Dates: start: 2006, end: 2009
  4. NAPROXEN [Suspect]
     Active Substance: NAPROXEN
     Indication: Arthritis
     Dosage: UNK
     Route: 065
     Dates: start: 2006, end: 2009
  5. LEFLUNOMIDE [Concomitant]
     Active Substance: LEFLUNOMIDE
     Indication: Product used for unknown indication
     Dosage: 20 MG, QD
     Route: 065
     Dates: start: 201209, end: 201303
  6. ETANERCEPT [Concomitant]
     Active Substance: ETANERCEPT
     Indication: Product used for unknown indication
     Dosage: 25 MG, Q2W
     Route: 058
     Dates: start: 2013
  7. PREDNISONE [Concomitant]
     Active Substance: PREDNISONE
     Indication: Product used for unknown indication
     Dosage: 10 MG, QD
     Route: 048
     Dates: start: 201309, end: 201403
  8. ONDANSETRON [Concomitant]
     Active Substance: ONDANSETRON
     Indication: Product used for unknown indication
     Dosage: UNK
     Route: 065
  9. ARISTOSPAN [Concomitant]
     Active Substance: TRIAMCINOLONE HEXACETONIDE
     Indication: Product used for unknown indication
     Dosage: UNK
     Route: 014
  10. GRAVOL [Concomitant]
     Active Substance: DIMENHYDRINATE
     Indication: Product used for unknown indication
     Dosage: UNK
     Route: 065
  11. ENBREL [Concomitant]
     Active Substance: ETANERCEPT
     Indication: Product used for unknown indication
     Dosage: 25 MG
     Route: 065
     Dates: start: 2013

REACTIONS (13)
  - Polyarthritis [Recovering/Resolving]
  - Joint swelling [Unknown]
  - Musculoskeletal stiffness [Unknown]
  - Oligoarthritis [Unknown]
  - Tenosynovitis [Unknown]
  - Dizziness [Unknown]
  - Affect lability [Unknown]
  - Headache [Unknown]
  - Nausea [Unknown]
  - Adverse event [Unknown]
  - Synovitis [Unknown]
  - Arthritis [Recovered/Resolved]
  - Drug intolerance [Unknown]

NARRATIVE: CASE EVENT DATE: 20100201
